FAERS Safety Report 7986043-X (Version None)
Quarter: 2011Q4

REPORT INFORMATION
  Report Type: 
  Country: None (occurrence: None)
  Receive Date: 20111216
  Receipt Date: 20110204
  Transmission Date: 20120403
  Serious: No
  Sender: FDA-Public Use
  Company Number: US-BRISTOL-MYERS SQUIBB COMPANY-15476039

PATIENT
  Age: 49 Year
  Sex: Female

DRUGS (1)
  1. ABILIFY [Suspect]
     Dosage: STARTED A YEAR AGO THEN STOPPED AGAIN RESTARTED

REACTIONS (5)
  - DYSKINESIA [None]
  - AKATHISIA [None]
  - TACHYCARDIA [None]
  - ARTHRALGIA [None]
  - DYSTONIA [None]
